FAERS Safety Report 15724424 (Version 2)
Quarter: 2019Q1

REPORT INFORMATION
  Report Type: Spontaneous
  Country: US (occurrence: US)
  Receive Date: 20181214
  Receipt Date: 20190109
  Transmission Date: 20190417
  Serious: Yes (Other)
  Sender: FDA-Public Use
  Company Number: US-OTSUKA-2017_002034

PATIENT
  Age: 56 Year
  Sex: Female

DRUGS (11)
  1. ABILIFY [Suspect]
     Active Substance: ARIPIPRAZOLE
     Indication: AGITATION
  2. ABILIFY [Suspect]
     Active Substance: ARIPIPRAZOLE
     Indication: IRRITABILITY
  3. ABILIFY [Suspect]
     Active Substance: ARIPIPRAZOLE
     Indication: ATTENTION DEFICIT/HYPERACTIVITY DISORDER
  4. MELOXICAM. [Concomitant]
     Active Substance: MELOXICAM
     Indication: PRODUCT USED FOR UNKNOWN INDICATION
     Dosage: 15 MG, QD
     Route: 048
  5. ABILIFY [Suspect]
     Active Substance: ARIPIPRAZOLE
     Indication: INSOMNIA
  6. ABILIFY [Suspect]
     Active Substance: ARIPIPRAZOLE
     Indication: ANHEDONIA
  7. HYDROCODONE/ACETAMINOPHEN [Concomitant]
     Active Substance: ACETAMINOPHEN\HYDROCODONE
     Indication: PRODUCT USED FOR UNKNOWN INDICATION
     Dosage: 1 DF, TID (HYDROCODONE 10 MG-ACETOMINOPHEN 325 MG)
     Route: 048
  8. MIRTAZAPINE. [Concomitant]
     Active Substance: MIRTAZAPINE
     Indication: PRODUCT USED FOR UNKNOWN INDICATION
     Dosage: 30 MG, QD
     Route: 048
  9. ABILIFY [Suspect]
     Active Substance: ARIPIPRAZOLE
     Indication: MAJOR DEPRESSION
     Dosage: 2 MG, QD
     Route: 065
     Dates: start: 20141224, end: 20151231
  10. ABILIFY [Suspect]
     Active Substance: ARIPIPRAZOLE
     Indication: ANXIETY
  11. FLUOXETINE [Concomitant]
     Active Substance: FLUOXETINE HYDROCHLORIDE
     Indication: PRODUCT USED FOR UNKNOWN INDICATION
     Dosage: 20 MG, QD
     Route: 048

REACTIONS (20)
  - Gambling disorder [Not Recovered/Not Resolved]
  - Decreased appetite [Unknown]
  - Disturbance in attention [Unknown]
  - Suicidal ideation [Unknown]
  - Imprisonment [Unknown]
  - Product use in unapproved indication [Unknown]
  - Economic problem [Unknown]
  - Homeless [Unknown]
  - Tachyphrenia [Unknown]
  - Sexual dysfunction [Unknown]
  - Asthenia [Unknown]
  - Anxiety [Unknown]
  - Memory impairment [Unknown]
  - Compulsive sexual behaviour [Unknown]
  - Abdominal pain upper [Unknown]
  - Compulsive shopping [Unknown]
  - Injury [Unknown]
  - Compulsive hoarding [Unknown]
  - Abnormal behaviour [Unknown]
  - Condition aggravated [Not Recovered/Not Resolved]

NARRATIVE: CASE EVENT DATE: 20141224
